FAERS Safety Report 8034109-0 (Version None)
Quarter: 2012Q1

REPORT INFORMATION
  Report Type: 
  Country: None (occurrence: None)
  Receive Date: 20120110
  Receipt Date: 20120104
  Transmission Date: 20120608
  Serious: Yes (Hospitalization)
  Sender: FDA-Public Use
  Company Number: US-ABBOTT-11P-163-0875610-00

PATIENT
  Sex: Female
  Weight: 76 kg

DRUGS (3)
  1. CORTISONE ACETATE [Suspect]
     Indication: PRODUCT USED FOR UNKNOWN INDICATION
  2. HUMIRA [Suspect]
     Indication: RHEUMATOID ARTHRITIS
     Route: 058
     Dates: start: 20110801
  3. HUMIRA [Suspect]
     Route: 058
     Dates: start: 20111118

REACTIONS (3)
  - PRODUCT DEPOSIT [None]
  - JOINT EFFUSION [None]
  - CHONDROCALCINOSIS PYROPHOSPHATE [None]
